FAERS Safety Report 5029478-X (Version None)
Quarter: 2006Q2

REPORT INFORMATION
  Report Type: 
  Country: None (occurrence: None)
  Receive Date: 20060504
  Receipt Date: 20060103
  Transmission Date: 20061013
  Serious: No
  Sender: FDA-Public Use
  Company Number: 200512692BWH

PATIENT
  Age: 75 Year
  Sex: Male

DRUGS (1)
  1. LEVITRA [Suspect]
     Dosage: SEE IMAGE
     Route: 048

REACTIONS (1)
  - DRUG INEFFECTIVE [None]
